FAERS Safety Report 15066554 (Version 1)
Quarter: 2018Q2

REPORT INFORMATION
  Report Type: Spontaneous
  Country: US (occurrence: US)
  Receive Date: 20180606
  Receipt Date: 20180606
  Transmission Date: 20180711
  Serious: No
  Sender: FDA-Public Use
  Company Number: None

PATIENT
  Age: 67 Year
  Sex: Male

DRUGS (5)
  1. OCALIVA [Suspect]
     Active Substance: OBETICHOLIC ACID
     Indication: PRIMARY BILIARY CHOLANGITIS
     Route: 048
     Dates: start: 20180316
  2. SENOKOT [Concomitant]
     Active Substance: SENNOSIDES
  3. OMEPRAZOLE. [Concomitant]
     Active Substance: OMEPRAZOLE
  4. CETIRIZINE [Concomitant]
     Active Substance: CETIRIZINE HYDROCHLORIDE
  5. URSODIOL. [Concomitant]
     Active Substance: URSODIOL

REACTIONS (3)
  - Lip disorder [None]
  - Eating disorder [None]
  - Stomatitis [None]
